FAERS Safety Report 7332472-7 (Version None)
Quarter: 2011Q1

REPORT INFORMATION
  Report Type: 
  Country: None (occurrence: None)
  Receive Date: 20110304
  Receipt Date: 20110223
  Transmission Date: 20110831
  Serious: Yes (Other)
  Sender: FDA-Public Use
  Company Number: JP-ROCHE-762852

PATIENT
  Age: 19 Year
  Sex: Male

DRUGS (2)
  1. CICLOSPORIN [Concomitant]
     Dosage: DOSAGE IS UNCERTAIN, DOSAGE FORM: UNCERTAINTY
  2. CELLCEPT [Suspect]
     Indication: PROPHYLAXIS AGAINST TRANSPLANT REJECTION
     Route: 048

REACTIONS (2)
  - RENAL IMPAIRMENT [None]
  - HYPOXIC-ISCHAEMIC ENCEPHALOPATHY [None]
